FAERS Safety Report 16199895 (Version 2)
Quarter: 2019Q2

REPORT INFORMATION
  Report Type: Spontaneous
  Country: TR (occurrence: TR)
  Receive Date: 20190415
  Receipt Date: 20190430
  Transmission Date: 20190711
  Serious: Yes (Other)
  Sender: FDA-Public Use
  Company Number: PHHY2019TR085062

PATIENT
  Age: 62 Year
  Sex: Female

DRUGS (1)
  1. SANDIMMUN NEORAL [Suspect]
     Active Substance: CYCLOSPORINE
     Indication: LIVER TRANSPLANT
     Dosage: UNK UNK, BID (MORNING AND EVENING)
     Route: 065
     Dates: start: 20190117

REACTIONS (5)
  - Hip fracture [Not Recovered/Not Resolved]
  - Foot fracture [Not Recovered/Not Resolved]
  - Malaise [Not Recovered/Not Resolved]
  - Product availability issue [Not Recovered/Not Resolved]
  - Fall [Unknown]
